FAERS Safety Report 11571360 (Version 6)
Quarter: 2019Q1

REPORT INFORMATION
  Report Type: Spontaneous
  Country: US (occurrence: US)
  Receive Date: 20150929
  Receipt Date: 20190301
  Transmission Date: 20190417
  Serious: Yes (Hospitalization, Other)
  Sender: FDA-Public Use
  Company Number: US-SA-2015SA090267

PATIENT
  Age: 52 Year
  Sex: Female

DRUGS (16)
  1. MIRTAZAPINE. [Concomitant]
     Active Substance: MIRTAZAPINE
  2. CLONAZEPAM. [Concomitant]
     Active Substance: CLONAZEPAM
  3. AUBAGIO [Suspect]
     Active Substance: TERIFLUNOMIDE
     Indication: MULTIPLE SCLEROSIS
     Dosage: 14 MG,QD
     Route: 048
     Dates: start: 20140816
  4. ASPIR 81 [Concomitant]
     Active Substance: ASPIRIN
  5. ACETAMINOPHEN;HYDROCODONE [Concomitant]
     Active Substance: ACETAMINOPHEN\HYDROCODONE
  6. HYDROCODONE BITARTRATE. [Concomitant]
     Active Substance: HYDROCODONE BITARTRATE
  7. ROPINIROL [ROPINIROLE] [Concomitant]
  8. SHINGRIX [Concomitant]
     Active Substance: RECOMBINANT VARICELLA ZOSTER VIRUS (VZV) GLYCOPROTEIN E
  9. XIIDRA [Concomitant]
     Active Substance: LIFITEGRAST
  10. ESCITALOPRAM [Concomitant]
     Active Substance: ESCITALOPRAM OXALATE
  11. DIAZEPAM. [Concomitant]
     Active Substance: DIAZEPAM
  12. ZOCOR [Concomitant]
     Active Substance: SIMVASTATIN
  13. HUMALOG [Concomitant]
     Active Substance: INSULIN LISPRO
  14. RESTASIS [Concomitant]
     Active Substance: CYCLOSPORINE
  15. ATENOLOL. [Concomitant]
     Active Substance: ATENOLOL
  16. ENALAPRIL MALEATE. [Concomitant]
     Active Substance: ENALAPRIL MALEATE

REACTIONS (3)
  - Hip surgery [Unknown]
  - Fall [Unknown]
  - Scab [Unknown]

NARRATIVE: CASE EVENT DATE: 20150613
